FAERS Safety Report 9721419 (Version 1)
Quarter: 2013Q4

REPORT INFORMATION
  Report Type: Spontaneous
  Country: US (occurrence: US)
  Receive Date: 20131129
  Receipt Date: 20131129
  Transmission Date: 20140711
  Serious: Yes (Hospitalization)
  Sender: FDA-Public Use
  Company Number: ALCN2013US005937

PATIENT
  Sex: Male

DRUGS (2)
  1. MYDFRIN [Suspect]
     Indication: OPHTHALMOLOGICAL EXAMINATION
     Dosage: 1 DF, UNK
     Route: 047
  2. MYDRIACYL [Suspect]
     Indication: OPHTHALMOLOGICAL EXAMINATION
     Dosage: 1 DF, UNK
     Route: 047

REACTIONS (1)
  - Convulsion [Unknown]
